FAERS Safety Report 7543719-6 (Version None)
Quarter: 2011Q2

REPORT INFORMATION
  Report Type: 
  Country: None (occurrence: None)
  Receive Date: 20110613
  Receipt Date: 20031027
  Transmission Date: 20111010
  Serious: Yes (Death, Other)
  Sender: FDA-Public Use
  Company Number: PHFR2003GB02832

PATIENT
  Sex: Male

DRUGS (2)
  1. CLOZAPINE [Suspect]
     Dosage: 325 MG
     Route: 048
     Dates: start: 20030711
  2. CLOZAPINE [Suspect]
     Indication: SCHIZOPHRENIA
     Dosage: 200 MG
     Route: 048
     Dates: start: 20020819

REACTIONS (4)
  - BRONCHOPNEUMONIA [None]
  - BRONCHIECTASIS [None]
  - CHEST X-RAY ABNORMAL [None]
  - MEDICATION ERROR [None]
